FAERS Safety Report 21317783 (Version 1)
Quarter: 2022Q3

REPORT INFORMATION
  Report Type: Spontaneous
  Country: US (occurrence: US)
  Receive Date: 20220911
  Receipt Date: 20220911
  Transmission Date: 20221027
  Serious: No
  Sender: FDA-Public Use
  Company Number: US-SA-SAC20220825001083

PATIENT
  Sex: Female

DRUGS (1)
  1. DUPIXENT [Suspect]
     Active Substance: DUPILUMAB
     Indication: Dermatitis atopic
     Dosage: 300 MG, EVERY 3 WEEKS
     Route: 058

REACTIONS (5)
  - Fatigue [Unknown]
  - COVID-19 [Unknown]
  - Abdominal discomfort [Unknown]
  - Illness [Unknown]
  - Inappropriate schedule of product administration [Unknown]
